FAERS Safety Report 7836045-9 (Version None)
Quarter: 2011Q4

REPORT INFORMATION
  Report Type: 
  Country: None (occurrence: None)
  Receive Date: 20111024
  Receipt Date: 20101029
  Transmission Date: 20120403
  Serious: No
  Sender: FDA-Public Use
  Company Number: US-ABBOTT-10P-163-0680656-00

PATIENT
  Age: 32 Year
  Sex: Female

DRUGS (1)
  1. LUPRON [Suspect]
     Indication: PRODUCT USED FOR UNKNOWN INDICATION
     Dosage: 10 UNITS

REACTIONS (2)
  - VAGINAL HAEMORRHAGE [None]
  - FEELING ABNORMAL [None]
